FAERS Safety Report 8622352 (Version 4)
Quarter: 2018Q2

REPORT INFORMATION
  Report Type: Report from Study
  Country: ZA (occurrence: ZA)
  Receive Date: 20120619
  Receipt Date: 20180615
  Transmission Date: 20180711
  Serious: Yes (Death, Hospitalization)
  Sender: FDA-Public Use
  Company Number: ZA-ROCHE-1079180

PATIENT
  Sex: Male

DRUGS (3)
  1. EPOETIN BETA [Suspect]
     Active Substance: ERYTHROPOIETIN
     Indication: NEPHROGENIC ANAEMIA
     Route: 065
  2. COSMOFER [Concomitant]
     Active Substance: IRON DEXTRAN
     Route: 065
  3. MIRCERA [Suspect]
     Active Substance: METHOXY POLYETHYLENE GLYCOL-EPOETIN BETA
     Indication: NEPHROGENIC ANAEMIA
     Route: 065
     Dates: start: 20111116

REACTIONS (7)
  - Sepsis [Fatal]
  - Haemoglobin decreased [Unknown]
  - Diabetes mellitus [Fatal]
  - Chronic kidney disease [Fatal]
  - Malaise [Unknown]
  - Disease progression [Fatal]
  - Hypertension [Fatal]
